FAERS Safety Report 20874252 (Version 1)
Quarter: 2022Q2

REPORT INFORMATION
  Report Type: Spontaneous
  Country: US (occurrence: None)
  Receive Date: 20220525
  Receipt Date: 20220525
  Transmission Date: 20220721
  Serious: No
  Sender: FDA-Public Use
  Company Number: None

PATIENT
  Age: 76 Year
  Sex: Female
  Weight: 64.86 kg

DRUGS (2)
  1. ENBREL [Suspect]
     Active Substance: ETANERCEPT
     Indication: Rheumatoid arthritis
     Dosage: INJECT 50MG  SUBCUTANEOUSLY ONCE WEEKLY  AS DIRECTED?
     Route: 058
     Dates: start: 201804
  2. ENBREL [Suspect]
     Active Substance: ETANERCEPT
     Indication: Senile osteoporosis

REACTIONS (4)
  - Therapy interrupted [None]
  - Chest pain [None]
  - Back pain [None]
  - Dyspnoea [None]
